FAERS Safety Report 13721324 (Version 1)
Quarter: 2017Q3

REPORT INFORMATION
  Report Type: Spontaneous
  Country: US (occurrence: US)
  Receive Date: 20170705
  Receipt Date: 20170705
  Transmission Date: 20171127
  Serious: Yes (Life-Threatening)
  Sender: FDA-Public Use
  Company Number: None

PATIENT
  Age: 59 Year
  Sex: Female
  Weight: 88 kg

DRUGS (1)
  1. EXPAREL [Suspect]
     Active Substance: BUPIVACAINE
     Indication: PROCEDURAL PAIN
     Dosage: ?          OTHER DOSE:ML;OTHER FREQUENCY:ONCE;OTHER ROUTE:SOFT TISSUE INJECTION?
     Dates: start: 20170630, end: 20170630

REACTIONS (6)
  - Ventricular tachycardia [None]
  - Pulseless electrical activity [None]
  - Toxicity to various agents [None]
  - Pulse absent [None]
  - Ventricular fibrillation [None]
  - Cardiogenic shock [None]

NARRATIVE: CASE EVENT DATE: 20170630
